FAERS Safety Report 9055106 (Version 2)
Quarter: 2013Q1

REPORT INFORMATION
  Report Type: Report from Study
  Country: JP (occurrence: JP)
  Receive Date: 20130206
  Receipt Date: 20130215
  Transmission Date: 20140127
  Serious: Yes (Hospitalization)
  Sender: FDA-Public Use
  Company Number: JP-AMGEN-JPNCT2013008314

PATIENT
  Age: 21 Year
  Sex: Male
  Weight: 68 kg

DRUGS (2)
  1. DENOSUMAB [Suspect]
     Indication: BONE GIANT CELL TUMOUR
     Dosage: 120 MG, Q4WK
     Route: 058
     Dates: start: 20120524
  2. CALCI CHEW D3 [Concomitant]
     Indication: CALCIUM DEFICIENCY
     Dosage: 2 DF, QD
     Route: 048
     Dates: start: 20120524

REACTIONS (1)
  - Pneumothorax [Recovering/Resolving]
